FAERS Safety Report 9156317 (Version 3)
Quarter: 2013Q2

REPORT INFORMATION
  Report Type: Report from Study
  Country: DE (occurrence: DE)
  Receive Date: 20130312
  Receipt Date: 20130419
  Transmission Date: 20140414
  Serious: Yes (Life-Threatening, Hospitalization)
  Sender: FDA-Public Use
  Company Number: DE-AMGEN-DEUSP2013016296

PATIENT
  Age: 65 Year
  Sex: Male
  Weight: 76 kg

DRUGS (14)
  1. ETANERCEPT [Suspect]
     Indication: RHEUMATOID ARTHRITIS
     Dosage: 25 MG, 1X WEEKLY
     Route: 058
     Dates: start: 20120717, end: 20121208
  2. FALITHROM [Concomitant]
     Dosage: UNK
  3. ESOMEPRAZOLE [Concomitant]
     Dosage: 40 MG, 1X/DAY 0-0-1
     Route: 048
  4. ACETYLCYSTEINE [Concomitant]
     Dosage: 600 MG, 1X/DAY 1-0-0
     Route: 048
  5. ASS [Concomitant]
     Dosage: 100 MG, 1X/DAY 1-0-0
     Route: 048
  6. SIMETICONE [Concomitant]
     Dosage: 2 DF, 3X/DAY 1-1-1
     Route: 048
  7. TORASEMIDE [Concomitant]
     Dosage: 10 MG, 2X/DAY 1-1-0
     Route: 048
  8. PAROMOMYCIN [Concomitant]
     Dosage: 1 G, 3X/DAY 1-1-1
     Route: 048
  9. LACTULOSE [Concomitant]
     Dosage: 10 ML, 2X/DAY 1-1-0
     Route: 048
  10. VALSARTAN HCT [Concomitant]
     Dosage: 160 MG / 12.5 MG 1-0-0
     Route: 048
  11. L-THYROXIN [Concomitant]
     Dosage: 150 UG, 1X/DAY 1-0-0
     Route: 048
  12. SPIRONOLACTONE [Concomitant]
     Dosage: 25 MG, 2X/DAY 1-1-0
     Route: 048
  13. TERLIPRESSIN [Concomitant]
     Dosage: 1 MG, EVERY SIX HOURS
     Route: 042
  14. ENOXAPARIN [Concomitant]
     Dosage: 80 MG, 1X/DAY
     Route: 058

REACTIONS (3)
  - Oesophageal ulcer haemorrhage [Recovered/Resolved with Sequelae]
  - Shock haemorrhagic [Recovered/Resolved with Sequelae]
  - Cardiac arrest [Recovered/Resolved with Sequelae]
